FAERS Safety Report 9387424 (Version 1)
Quarter: 2013Q3

REPORT INFORMATION
  Report Type: Spontaneous
  Country: US (occurrence: None)
  Receive Date: 20130702
  Receipt Date: 20130702
  Transmission Date: 20140515
  Serious: Yes (Hospitalization, Other)
  Sender: FDA-Public Use
  Company Number: UTC-034799

PATIENT
  Age: 46 Year
  Sex: Female
  Weight: 92.9 kg

DRUGS (8)
  1. REMODULIN (5 MILLIGRAM/MILLILITERS, INJECTION FOR INFUSION) (TREPROSTINIL SODIUM) [Suspect]
     Indication: PULMONARY ARTERIAL HYPERTENSION
     Dosage: 40.32 UG/KG (0.028 UG/KG,1 IN 1 MIN),SUBCUTANEOUS
     Route: 058
     Dates: start: 20120827
  2. REVATIO (SILDENAFIL) [Concomitant]
  3. CELEXA (CITALOPRAM HYDROBROMIDE) [Concomitant]
  4. METOPROLOL [Concomitant]
  5. LASIX (FUROSEMIDE) [Concomitant]
  6. LANSOPRAZOLE [Concomitant]
  7. CYMBALTA (DULOXETINE) [Concomitant]
  8. SALBUTAMOL (INHALANT) [Concomitant]

REACTIONS (5)
  - Infusion site abscess [None]
  - Hypoglycaemia [None]
  - Deep vein thrombosis [None]
  - Renal failure acute [None]
  - Atrial fibrillation [None]
